FAERS Safety Report 5574025-7 (Version None)
Quarter: 2007Q4

REPORT INFORMATION
  Report Type: 
  Country: None (occurrence: None)
  Receive Date: 20071221
  Receipt Date: 20071102
  Transmission Date: 20080405
  Serious: Yes (Hospitalization)
  Sender: FDA-Public Use
  Company Number: 2007S1011273

PATIENT
  Age: 26 Year
  Sex: Male

DRUGS (16)
  1. DEXAMETHASONE TAB [Suspect]
     Indication: ACUTE LYMPHOCYTIC LEUKAEMIA
  2. VINCRISTINE [Suspect]
     Indication: ACUTE LYMPHOCYTIC LEUKAEMIA
  3. DAUNORUBICIN HCL [Suspect]
     Indication: ACUTE LYMPHOCYTIC LEUKAEMIA
  4. PEGASPARGASE (PEGASPARGASE) [Suspect]
     Indication: ACUTE LYMPHOCYTIC LEUKAEMIA
  5. CYCLOPHOSPHAMIDE [Suspect]
     Indication: ACUTE LYMPHOCYTIC LEUKAEMIA
  6. CYTARABINE [Suspect]
     Indication: ACUTE LYMPHOCYTIC LEUKAEMIA
  7. MERCAPTOPURINE [Suspect]
     Indication: ACUTE LYMPHOCYTIC LEUKAEMIA
  8. METHOTREXATE [Suspect]
     Indication: ACUTE LYMPHOCYTIC LEUKAEMIA
  9. ETOPOSIDE [Suspect]
     Indication: ACUTE LYMPHOCYTIC LEUKAEMIA
  10. VINDESINE (VINDESINE) [Suspect]
     Indication: ACUTE LYMPHOCYTIC LEUKAEMIA
  11. FLUDARABINE PHOSPHATE [Suspect]
     Indication: ACUTE LYMPHOCYTIC LEUKAEMIA
  12. AMSACRINE (AMSACRINE) [Suspect]
     Indication: ACUTE LYMPHOCYTIC LEUKAEMIA
  13. CLADRIBINE [Suspect]
     Indication: ACUTE LYMPHOCYTIC LEUKAEMIA
  14. CAMPATH [Suspect]
     Indication: ACUTE LYMPHOCYTIC LEUKAEMIA
  15. CYCLOSPORINE [Suspect]
     Indication: GRAFT VERSUS HOST DISEASE
  16. ANTITHYMOCYTE-GLOBULIN [Suspect]
     Indication: ACUTE LYMPHOCYTIC LEUKAEMIA

REACTIONS (4)
  - LEUKAEMIA RECURRENT [None]
  - LYMPHOPENIA [None]
  - NEUTROPENIA [None]
  - SYSTEMIC CANDIDA [None]
